FAERS Safety Report 6442944-5 (Version None)
Quarter: 2009Q4

REPORT INFORMATION
  Report Type: 
  Country: None (occurrence: None)
  Receive Date: 20091112
  Receipt Date: 20091102
  Transmission Date: 20100525
  Serious: Yes (Disabling, Other)
  Sender: FDA-Public Use
  Company Number: ADR49262009

PATIENT
  Age: 72 Year
  Sex: Male

DRUGS (6)
  1. SIMVASTATIN [Suspect]
     Indication: HYPERCHOLESTEROLAEMIA
     Dosage: 20 MG, ORAL
     Route: 048
     Dates: start: 20070401
  2. ASACOL [Concomitant]
  3. DAPSONE [Concomitant]
  4. LOSEC [Concomitant]
  5. NIFEDIPINE [Concomitant]
  6. PROPRANOLOL [Concomitant]

REACTIONS (5)
  - ASTHENIA [None]
  - MUSCULAR WEAKNESS [None]
  - MYALGIA [None]
  - NIGHT SWEATS [None]
  - WEIGHT DECREASED [None]
